FAERS Safety Report 13233446 (Version 1)
Quarter: 2017Q1

REPORT INFORMATION
  Report Type: Spontaneous
  Country: US (occurrence: US)
  Receive Date: 20170214
  Receipt Date: 20170214
  Transmission Date: 20170428
  Serious: Yes (Disabling, Other)
  Sender: FDA-Public Use
  Company Number: None

PATIENT
  Age: 37 Year
  Sex: Female
  Weight: 110.2 kg

DRUGS (11)
  1. BUPRENORPHINE HYDROCHLORIDE AND NALOXONE HYDROCHLORIDE [Suspect]
     Active Substance: BUPRENORPHINE HYDROCHLORIDE\NALOXONE HYDROCHLORIDE
     Indication: DEPENDENCE
     Dosage: ?          QUANTITY:20 TABLET(S);?
     Route: 060
     Dates: start: 20170207
  2. IBUPROFEN. [Concomitant]
     Active Substance: IBUPROFEN
  3. XANAX [Concomitant]
     Active Substance: ALPRAZOLAM
  4. LISONOPRIL [Concomitant]
  5. TOMAPAX [Concomitant]
  6. ATARAX [Concomitant]
     Active Substance: HYDROXYZINE HYDROCHLORIDE
  7. PRAVASTATIN. [Concomitant]
     Active Substance: PRAVASTATIN
  8. ESCITALOPRAM [Concomitant]
     Active Substance: ESCITALOPRAM OXALATE
  9. VITAMIN B [Concomitant]
     Active Substance: VITAMIN B
  10. VITAMIN D [Concomitant]
     Active Substance: CHOLECALCIFEROL
  11. CLINDAMYCIN. [Concomitant]
     Active Substance: CLINDAMYCIN

REACTIONS (8)
  - Anger [None]
  - Aggression [None]
  - Irritability [None]
  - Panic attack [None]
  - Tooth infection [None]
  - Crying [None]
  - Insurance issue [None]
  - Negative thoughts [None]

NARRATIVE: CASE EVENT DATE: 20170207
